FAERS Safety Report 8080822-9 (Version None)
Quarter: 2012Q1

REPORT INFORMATION
  Report Type: 
  Country: None (occurrence: None)
  Receive Date: 20120130
  Receipt Date: 20120120
  Transmission Date: 20120608
  Serious: Yes (Hospitalization)
  Sender: FDA-Public Use
  Company Number: US-ROCHE-1033196

PATIENT
  Sex: Female
  Weight: 95.794 kg

DRUGS (13)
  1. BLINDED OCRELIZUMAB [Suspect]
     Indication: RHEUMATOID ARTHRITIS
     Route: 042
     Dates: start: 20080912
  2. PREDNISONE TAB [Concomitant]
     Dates: start: 20050912
  3. IRON SULFATETHIAMIN COMPOUND TAB [Concomitant]
     Dates: start: 20101205
  4. AMITRIPTYLINE HCL [Concomitant]
     Dates: start: 20040526
  5. FOLIC ACID [Concomitant]
     Dates: start: 20010309
  6. HERCEPTIN [Suspect]
     Indication: BREAST CANCER
     Dates: start: 20111125
  7. ATENOLOL [Concomitant]
     Dates: start: 20020522
  8. FUROSEMIDE [Concomitant]
     Dates: start: 20080730
  9. DOCETAXEL [Suspect]
     Indication: BREAST CANCER
     Dates: start: 20111125
  10. PRILOSEC OTC [Concomitant]
     Dates: start: 20090816
  11. REGLAN [Concomitant]
     Dates: start: 20111101
  12. CARBOPLATIN [Suspect]
     Indication: BREAST CANCER
     Dates: start: 20111125
  13. TRAMADOL HCL [Concomitant]
     Dates: start: 20040526

REACTIONS (5)
  - NAUSEA [None]
  - VOMITING [None]
  - DEHYDRATION [None]
  - RENAL FAILURE ACUTE [None]
  - NEUTROPENIA [None]
